FAERS Safety Report 5684164-8 (Version None)
Quarter: 2008Q1

REPORT INFORMATION
  Report Type: 
  Country: None (occurrence: None)
  Receive Date: 20080328
  Receipt Date: 20071005
  Transmission Date: 20080703
  Serious: Yes (Hospitalization)
  Sender: FDA-Public Use
  Company Number: US-AMGEN-US236590

PATIENT
  Sex: Female

DRUGS (9)
  1. AMG 706 [Suspect]
     Indication: NON-SMALL CELL LUNG CANCER
     Route: 048
     Dates: start: 20070725
  2. NEULASTA [Suspect]
     Indication: CHEMOTHERAPY
     Route: 058
     Dates: start: 20070726
  3. TAXOL [Suspect]
     Route: 065
  4. CARBOPLATIN [Suspect]
     Route: 065
     Dates: start: 20070725
  5. LEVOXYL [Concomitant]
     Route: 048
  6. OXYCONTIN [Concomitant]
     Route: 065
     Dates: start: 20030101
  7. ZOLOFT [Concomitant]
     Route: 048
     Dates: start: 20030101
  8. SOMA [Concomitant]
     Route: 065
     Dates: start: 20030101
  9. COMPAZINE [Concomitant]
     Route: 065
     Dates: start: 20070726

REACTIONS (1)
  - VOMITING [None]
